FAERS Safety Report 14816516 (Version 1)
Quarter: 2018Q2

REPORT INFORMATION
  Report Type: Spontaneous
  Country: CA (occurrence: CA)
  Receive Date: 20180417
  Receipt Date: 20180417
  Transmission Date: 20180711
  Serious: Yes (Other)
  Sender: FDA-Public Use
  Company Number: None

PATIENT
  Age: 54 Year
  Sex: Female
  Weight: 78.97 kg

DRUGS (16)
  1. DOMPERIDONE [Concomitant]
     Active Substance: DOMPERIDONE
  2. ROSUVASTATIN. [Concomitant]
     Active Substance: ROSUVASTATIN
  3. TARO-DOCUSATE [Concomitant]
  4. TEVA-CLINDAMYCIN300MGCL /CLINDAMYCINH300MG [Suspect]
     Active Substance: CLINDAMYCIN HYDROCHLORIDE
     Indication: INFECTION PROPHYLAXIS
     Dosage: ?          QUANTITY:1 CAPSULE(S);?
     Route: 048
     Dates: start: 20180411, end: 20180413
  5. GABAPENTIN. [Concomitant]
     Active Substance: GABAPENTIN
  6. TOUJEO [Concomitant]
     Active Substance: INSULIN GLARGINE
  7. MORPHINE [Concomitant]
     Active Substance: MORPHINE
  8. LORATADINE. [Concomitant]
     Active Substance: LORATADINE
  9. COQ10 [Concomitant]
     Active Substance: UBIDECARENONE
  10. PROBIOTICS [Concomitant]
     Active Substance: PROBIOTICS NOS
  11. STATEX [Concomitant]
     Active Substance: MORPHINE SULFATE
  12. NOVORAPID [Concomitant]
     Active Substance: INSULIN ASPART
  13. FUROSEMIDE. [Concomitant]
     Active Substance: FUROSEMIDE
  14. LANSOPRAZOLE. [Concomitant]
     Active Substance: LANSOPRAZOLE
  15. TELMISARTAN. [Concomitant]
     Active Substance: TELMISARTAN
  16. BISOPROLOL [Concomitant]
     Active Substance: BISOPROLOL

REACTIONS (2)
  - Feeding disorder [None]
  - Gastric disorder [None]

NARRATIVE: CASE EVENT DATE: 20180413
